FAERS Safety Report 6093317-9 (Version None)
Quarter: 2009Q1

REPORT INFORMATION
  Report Type: 
  Country: None (occurrence: None)
  Receive Date: 20090224
  Receipt Date: 20090224
  Transmission Date: 20090719
  Serious: Yes (Disabling)
  Sender: FDA-Public Use
  Company Number: None

PATIENT
  Sex: Male
  Weight: 99.7913 kg

DRUGS (5)
  1. CLOMIPRAMINE HCL [Suspect]
     Indication: DEPRESSION
     Dosage: TABS TWICE (150MG) H.S. DAILY P.O.
     Route: 048
     Dates: start: 20090117
  2. CLOMIPRAMINE HCL [Suspect]
     Indication: OBSESSIVE-COMPULSIVE DISORDER
     Dosage: TABS TWICE (150MG) H.S. DAILY P.O.
     Route: 048
     Dates: start: 20090117
  3. CLOMIPRAMINE HCL [Suspect]
     Indication: DEPRESSION
     Dosage: TABS TWICE (150MG) H.S. DAILY P.O.
     Route: 048
     Dates: start: 20090118
  4. CLOMIPRAMINE HCL [Suspect]
     Indication: OBSESSIVE-COMPULSIVE DISORDER
     Dosage: TABS TWICE (150MG) H.S. DAILY P.O.
     Route: 048
     Dates: start: 20090118
  5. SERTRALINE [Concomitant]

REACTIONS (8)
  - DISTURBANCE IN ATTENTION [None]
  - DIZZINESS [None]
  - FEAR [None]
  - IMPAIRED DRIVING ABILITY [None]
  - OCULAR HYPERAEMIA [None]
  - PRODUCT QUALITY ISSUE [None]
  - SLEEP DISORDER [None]
  - VISION BLURRED [None]
